FAERS Safety Report 8383062-9 (Version None)
Quarter: 2012Q2

REPORT INFORMATION
  Report Type: 
  Country: None (occurrence: None)
  Receive Date: 20120522
  Receipt Date: 20120510
  Transmission Date: 20120825
  Serious: Yes (Hospitalization)
  Sender: FDA-Public Use
  Company Number: DKLU1079600

PATIENT
  Age: 20 Year
  Sex: Male

DRUGS (2)
  1. SABRIL [Suspect]
     Indication: GRAND MAL CONVULSION
     Dosage: 1500 MG MILLIGRAM(S),1 IN 12 HR, ORAL
     Route: 048
     Dates: start: 20100801
  2. SABRIL [Suspect]
     Indication: TUBEROUS SCLEROSIS
     Dosage: 1500 MG MILLIGRAM(S),1 IN 12 HR, ORAL
     Route: 048
     Dates: start: 20100801

REACTIONS (1)
  - RENAL EMBOLISM [None]
